FAERS Safety Report 23245917 (Version 1)
Quarter: 2023Q4

REPORT INFORMATION
  Report Type: Other
  Country: US (occurrence: None)
  Receive Date: 20231130
  Receipt Date: 20231130
  Transmission Date: 20240110
  Serious: Yes (Life-Threatening, Hospitalization)
  Sender: FDA-Public Use
  Company Number: US-ROCHE-3462731

PATIENT
  Age: 35 Year
  Sex: Male
  Weight: 54.48 kg

DRUGS (2)
  1. EVRYSDI [Suspect]
     Active Substance: RISDIPLAM
     Indication: Spinal muscular atrophy
     Dosage: STRENGTH: 0.75 MG/ML
     Route: 048
     Dates: start: 20201106
  2. EVRYSDI [Suspect]
     Active Substance: RISDIPLAM
     Indication: Spinal muscular atrophy

REACTIONS (1)
  - Cerebrovascular accident [Recovering/Resolving]
